FAERS Safety Report 8761931 (Version 1)
Quarter: 2012Q4

REPORT INFORMATION
  Report Type: 
  Country: US (occurrence: US)
  Receive Date: 20120830
  Receipt Date: 20120830
  Transmission Date: 20130627
  Serious: Yes (Other)
  Sender: FDA-Public Use
  Company Number: CHPA2012US018848

PATIENT
  Age: 77 Year
  Sex: Female

DRUGS (4)
  1. BENEFIBER W/ WHEAT DEXTRIN [Suspect]
     Indication: NUTRITIONAL SUPPORT
     Dosage: 2 HEAPING TSP, ONCE A DAY
     Route: 048
     Dates: start: 200712
  2. PRAVACOL [Concomitant]
     Indication: BLOOD CHOLESTEROL INCREASED
     Dosage: Unk, EVERY NIGHT
     Dates: start: 2000
  3. FISH OIL [Concomitant]
     Dosage: 2 PILLS, A DAY
     Route: 048
     Dates: start: 2006
  4. HYDROCHLOROTHIAZIDE [Concomitant]
     Indication: HYPERTENSION
     Dosage: 1 PILL, A DAY IN THE MORNING
     Route: 048
     Dates: start: 2006

REACTIONS (4)
  - Osteoporosis [Not Recovered/Not Resolved]
  - Wrist fracture [Recovered/Resolved]
  - Fall [Recovered/Resolved]
  - Underdose [Unknown]
